FAERS Safety Report 21691356 (Version 3)
Quarter: 2023Q2

REPORT INFORMATION
  Report Type: Report from Study
  Country: IN (occurrence: IN)
  Receive Date: 20221207
  Receipt Date: 20230425
  Transmission Date: 20230721
  Serious: Yes (Other)
  Sender: FDA-Public Use
  Company Number: IN-SUN PHARMACEUTICAL INDUSTRIES LTD-2022R1-366871

PATIENT
  Age: 54 Year
  Sex: Male

DRUGS (4)
  1. AMPHOTERICIN B [Suspect]
     Active Substance: AMPHOTERICIN B
     Indication: Histoplasmosis
     Dosage: UNK  (3.0-5.0 MG/KG)
     Route: 042
  2. FLUDROCORTISONE [Concomitant]
     Active Substance: FLUDROCORTISONE
     Indication: Histoplasmosis
     Dosage: UNK 50-150 MICROG/DAY
     Route: 065
  3. HYDROCORTISONE [Concomitant]
     Active Substance: HYDROCORTISONE
     Indication: Histoplasmosis
     Dosage: UNK 15-25 MG/DAY
     Route: 048
  4. ITRACONAZOLE [Concomitant]
     Active Substance: ITRACONAZOLE
     Indication: Histoplasmosis
     Dosage: 200 MILLIGRAM, TID FOR 3 DAYS FOLLOWED BY 2 TIMES DAILY FOR AT LEAST 12 MONTHS
     Route: 048

REACTIONS (2)
  - Hypokalaemia [Unknown]
  - Nephropathy toxic [Unknown]
